FAERS Safety Report 14115495 (Version 1)
Quarter: 2017Q4

REPORT INFORMATION
  Report Type: Spontaneous
  Country: FR (occurrence: FR)
  Receive Date: 20171023
  Receipt Date: 20171023
  Transmission Date: 20180321
  Serious: Yes (Hospitalization, Other)
  Sender: FDA-Public Use
  Company Number: FR-NOVOPROD-567951

PATIENT
  Age: 43 Year
  Sex: Female

DRUGS (11)
  1. PARACETAMOL [Concomitant]
     Active Substance: ACETAMINOPHEN
     Indication: PAIN
     Dosage: 1-4 DF
  2. GLIMEPIRIDE. [Suspect]
     Active Substance: GLIMEPIRIDE
     Indication: TYPE 2 DIABETES MELLITUS
     Dosage: 1 DF, BID
     Route: 048
     Dates: start: 2016
  3. SOTALOL. [Suspect]
     Active Substance: SOTALOL
     Indication: ATRIAL FIBRILLATION
     Dosage: 1 DF, QD (ADD 1 DF IF TACHYCARDIA)
     Route: 048
  4. STAGID [Suspect]
     Active Substance: METFORMIN PAMOATE
     Indication: TYPE 2 DIABETES MELLITUS
     Dosage: 1 DF, BID
     Route: 048
     Dates: start: 2013
  5. IMODIUM [Concomitant]
     Active Substance: LOPERAMIDE HYDROCHLORIDE
     Indication: DIARRHOEA
     Dosage: 1 DF, QD(IF DIARRHOEA)
  6. NOVORAPID [Suspect]
     Active Substance: INSULIN ASPART
     Indication: TYPE 2 DIABETES MELLITUS
     Dosage: AS NEEDED
     Route: 058
  7. LIPANTHYL [Suspect]
     Active Substance: FENOFIBRATE
     Indication: HYPERTRIGLYCERIDAEMIA
     Dosage: 1 DF, QD
     Route: 048
     Dates: start: 20141013
  8. XARELTO [Suspect]
     Active Substance: RIVAROXABAN
     Indication: ATRIAL FIBRILLATION
     Dosage: 1 DF, QD
     Route: 048
     Dates: start: 201510
  9. MOVICOL [Concomitant]
     Active Substance: POLYETHYLENE GLYCOL 3350\POTASSIUM CHLORIDE\SODIUM BICARBONATE\SODIUM CHLORIDE
     Dosage: UNK
  10. VICTOZA [Suspect]
     Active Substance: LIRAGLUTIDE
     Indication: TYPE 2 DIABETES MELLITUS
     Dosage: 1.8 MG, QD
     Route: 058
     Dates: start: 2013, end: 20170923
  11. EUPANTOL [Suspect]
     Active Substance: PANTOPRAZOLE SODIUM
     Indication: GASTRITIS
     Dosage: 1 DF, QD
     Route: 048

REACTIONS (5)
  - Cholecystitis acute [Not Recovered/Not Resolved]
  - Fall [Unknown]
  - Diabetes mellitus inadequate control [Unknown]
  - Thyroid mass [Unknown]
  - Loss of consciousness [Unknown]

NARRATIVE: CASE EVENT DATE: 201709
